FAERS Safety Report 14844207 (Version 1)
Quarter: 2018Q2

REPORT INFORMATION
  Report Type: Spontaneous
  Country: AT (occurrence: AT)
  Receive Date: 20180503
  Receipt Date: 20180503
  Transmission Date: 20180711
  Serious: Yes (Death, Other)
  Sender: FDA-Public Use
  Company Number: AT-TEVA-2018-AT-887979

PATIENT
  Sex: Male

DRUGS (6)
  1. DOCETAXEL. [Suspect]
     Active Substance: DOCETAXEL
     Indication: PROSTATE CANCER
     Route: 051
     Dates: start: 201608, end: 201608
  2. DOCETAXEL. [Suspect]
     Active Substance: DOCETAXEL
     Indication: ARTHRALGIA
     Route: 051
     Dates: start: 201605, end: 201605
  3. ENZALUTAMIDE [Concomitant]
     Active Substance: ENZALUTAMIDE
     Indication: PROSTATIC SPECIFIC ANTIGEN
     Route: 065
     Dates: start: 201602, end: 201604
  4. CABAZITAXEL [Concomitant]
     Active Substance: CABAZITAXEL
     Route: 065
     Dates: start: 201609
  5. ABIRATERONE [Concomitant]
     Active Substance: ABIRATERONE
     Indication: METASTASES TO BONE
     Route: 065
     Dates: start: 201512
  6. RADIUM 223 [Concomitant]
     Active Substance: RADIUM RA-223 DICHLORIDE
     Indication: PRODUCT USED FOR UNKNOWN INDICATION
     Route: 065
     Dates: start: 201509, end: 201608

REACTIONS (2)
  - Polyneuropathy [Unknown]
  - Dysgeusia [Unknown]
